FAERS Safety Report 5573551-4 (Version None)
Quarter: 2007Q4

REPORT INFORMATION
  Report Type: 
  Country: None (occurrence: None)
  Receive Date: 20071220
  Receipt Date: 20071220
  Transmission Date: 20080405
  Serious: Yes (Other)
  Sender: FDA-Public Use
  Company Number: None

PATIENT
  Weight: 74.8435 kg

DRUGS (1)
  1. BUDEPRION XL TAB   300 MG   TEVA [Suspect]
     Indication: DEPRESSION
     Dosage: 300 MG  ONCE A DAY  PO
     Route: 048
     Dates: start: 20071028, end: 20071111

REACTIONS (7)
  - ANXIETY [None]
  - DEPRESSION [None]
  - DRUG INEFFECTIVE [None]
  - HEADACHE [None]
  - LETHARGY [None]
  - THERAPEUTIC RESPONSE UNEXPECTED WITH DRUG SUBSTITUTION [None]
  - TINNITUS [None]
